FAERS Safety Report 5453452-2 (Version None)
Quarter: 2007Q3

REPORT INFORMATION
  Report Type: 
  Country: None (occurrence: None)
  Receive Date: 20070913
  Receipt Date: 20070910
  Transmission Date: 20080115
  Serious: Yes (Hospitalization)
  Sender: FDA-Public Use
  Company Number: 2007BI014643

PATIENT
  Age: 58 Year
  Sex: Female
  Weight: 73.0291 kg

DRUGS (7)
  1. AVONEX [Suspect]
     Indication: MULTIPLE SCLEROSIS
     Dosage: 30 UG; QW; IM
     Route: 030
     Dates: start: 20030712, end: 20030801
  2. AVONEX [Suspect]
     Indication: MULTIPLE SCLEROSIS
     Dosage: 30 UG; QW; IM
     Route: 030
     Dates: start: 20030801, end: 20070601
  3. AMANDINE [Concomitant]
  4. PEPSID [Concomitant]
  5. PLAVIX [Concomitant]
  6. DIOVAN [Concomitant]
  7. CALCIUM [Concomitant]

REACTIONS (8)
  - BACK PAIN [None]
  - BREAST MASS [None]
  - DEPRESSION [None]
  - FEAR [None]
  - GASTROINTESTINAL DISORDER [None]
  - MULTIPLE SCLEROSIS RELAPSE [None]
  - NERVOUSNESS [None]
  - OSTEOARTHRITIS [None]
